FAERS Safety Report 4465480-4 (Version None)
Quarter: 2004Q3

REPORT INFORMATION
  Report Type: 
  Country: None (occurrence: None)
  Receive Date: 20040929
  Receipt Date: 20040914
  Transmission Date: 20050211
  Serious: Yes (Death)
  Sender: FDA-Public Use
  Company Number: USA040977537

PATIENT
  Age: 53 Year
  Sex: Female

DRUGS (4)
  1. ZYPREXA [Suspect]
     Route: 065
  2. PROZAC [Suspect]
     Route: 065
  3. RISPERDAL [Concomitant]
  4. MIRACETTE [Concomitant]

REACTIONS (2)
  - CHOKING [None]
  - DRUG LEVEL INCREASED [None]
